FAERS Safety Report 9800788 (Version 2)
Quarter: 2014Q1

REPORT INFORMATION
  Report Type: Spontaneous
  Country: US (occurrence: US)
  Receive Date: 20140107
  Receipt Date: 20140110
  Transmission Date: 20141002
  Serious: No
  Sender: FDA-Public Use
  Company Number: US-PFIZER INC-2014002815

PATIENT
  Age: 49 Year
  Sex: Female
  Weight: 99.77 kg

DRUGS (1)
  1. CELEBREX [Suspect]
     Indication: MUSCULOSKELETAL PAIN
     Dosage: UNK, DAILY

REACTIONS (1)
  - Drug effect decreased [Unknown]
